FAERS Safety Report 10090567 (Version 1)
Quarter: 2014Q2

REPORT INFORMATION
  Report Type: Spontaneous
  Country: US (occurrence: None)
  Receive Date: 20140417
  Receipt Date: 20140417
  Transmission Date: 20141212
  Serious: Yes (Other)
  Sender: FDA-Public Use
  Company Number: UTC-047019

PATIENT
  Age: 54 Year
  Sex: Female
  Weight: 49.44 kg

DRUGS (4)
  1. REMODULIN [Suspect]
     Indication: PULMONARY ARTERIAL HYPERTENSION
     Dosage: 93.6 UG/KG (0.065 UG/KG 1 IN 1 MIN INTRAVENOUS DRIP
     Route: 041
     Dates: start: 20130312
  2. SILDENAFIL (SILDENAFIL) [Concomitant]
  3. XARELTO (RIVAROXABAN) [Concomitant]
  4. TRACLEER (BOSENTAN) [Concomitant]

REACTIONS (1)
  - Chest pain [None]
